FAERS Safety Report 11587890 (Version 1)
Quarter: 2015Q4

REPORT INFORMATION
  Report Type: Spontaneous
  Country: None (occurrence: KR)
  Receive Date: 20151001
  Receipt Date: 20151001
  Transmission Date: 20160304
  Serious: Yes (Death, Hospitalization)
  Sender: FDA-Public Use
  Company Number: KR-RARE DISEASE THERAPEUTICS, INC.-1042487

PATIENT
  Age: 33 Year
  Sex: Male

DRUGS (3)
  1. INFLIXIMAB [Suspect]
     Active Substance: INFLIXIMAB
     Route: 065
  2. PURIXAN [Suspect]
     Active Substance: MERCAPTOPURINE
     Indication: CROHN^S DISEASE
     Route: 065
     Dates: start: 199805
  3. MESALAZINE [Suspect]
     Active Substance: MESALAMINE
     Route: 065
     Dates: start: 199805

REACTIONS (6)
  - Papillary thyroid cancer [Unknown]
  - Small intestinal obstruction [Unknown]
  - Off label use [Unknown]
  - Cerebral haemorrhage [Fatal]
  - Pneumonia [Fatal]
  - Acute lymphocytic leukaemia [Unknown]

NARRATIVE: CASE EVENT DATE: 199805
